FAERS Safety Report 4371333-2 (Version None)
Quarter: 2004Q2

REPORT INFORMATION
  Report Type: 
  Country: None (occurrence: None)
  Receive Date: 20040603
  Receipt Date: 20040517
  Transmission Date: 20050107
  Serious: Yes (Other)
  Sender: FDA-Public Use
  Company Number: HQWYE036020MAY04

PATIENT

DRUGS (1)
  1. PROTONIX [Suspect]
     Dosage: ORAL
     Route: 048

REACTIONS (2)
  - HEPATITIS C [None]
  - LIVER DISORDER [None]
